FAERS Safety Report 26213459 (Version 1)
Quarter: 2025Q4

REPORT INFORMATION
  Report Type: Spontaneous
  Country: EU (occurrence: EU)
  Receive Date: 20251230
  Receipt Date: 20251230
  Transmission Date: 20260117
  Serious: Yes (Congenital Anomaly, Other)
  Sender: SANOFI AVENTIS
  Company Number: None

PATIENT
  Sex: Male
  Weight: 2 kg

DRUGS (5)
  1. ARAVA [Suspect]
     Active Substance: LEFLUNOMIDE
     Indication: Rheumatoid arthritis
     Dosage: 10 [MG/D ]/ CA 20 WEEKS PRECONCEPTIONAL
     Route: 064
  2. METHYLPREDNISOLONE [Suspect]
     Active Substance: METHYLPREDNISOLONE
     Indication: Rheumatoid arthritis
     Dosage: 16 MG/DL (2X8)
     Route: 064
     Dates: start: 20110428, end: 20111222
  3. UTROGESTAN [Suspect]
     Active Substance: PROGESTERONE
     Indication: Prophylaxis of abortion
     Dosage: 200 MG/DL
     Route: 064
  4. FUSAFUNGINE [Suspect]
     Active Substance: FUSAFUNGINE
     Indication: Nasopharyngitis
     Dosage: UNK
     Route: 064
  5. MINERALS\VITAMINS [Suspect]
     Active Substance: MINERALS\VITAMINS
     Indication: Prophylaxis of neural tube defect
     Dosage: 0.8 MG/DL
     Route: 064
     Dates: start: 20110428, end: 20111222

REACTIONS (9)
  - Congenital diaphragmatic hernia [Not Recovered/Not Resolved]
  - Osteogenesis imperfecta [Not Recovered/Not Resolved]
  - Ventricular septal defect [Not Recovered/Not Resolved]
  - Congenital inguinal hernia [Not Recovered/Not Resolved]
  - Congenital megacolon [Not Recovered/Not Resolved]
  - Intraventricular haemorrhage [Not Recovered/Not Resolved]
  - Areflexia [Not Recovered/Not Resolved]
  - Osteochondrodysplasia [Not Recovered/Not Resolved]
  - Foetal exposure timing unspecified [Unknown]

NARRATIVE: CASE EVENT DATE: 20111222
